FAERS Safety Report 5492890-9 (Version None)
Quarter: 2007Q4

REPORT INFORMATION
  Report Type: 
  Country: None (occurrence: None)
  Receive Date: 20071023
  Receipt Date: 20071012
  Transmission Date: 20080405
  Serious: Yes (Other)
  Sender: FDA-Public Use
  Company Number: US-KINGPHARMUSA00001-K200701332

PATIENT

DRUGS (1)
  1. ALTACE [Suspect]
     Indication: HYPERTENSION

REACTIONS (1)
  - MACULAR DEGENERATION [None]
